FAERS Safety Report 7268273-8 (Version None)
Quarter: 2010Q4

REPORT INFORMATION
  Report Type: 
  Country: None (occurrence: None)
  Receive Date: 20101206
  Receipt Date: 20100914
  Transmission Date: 20110411
  Serious: No
  Sender: FDA-Public Use
  Company Number: 2010SP049356

PATIENT
  Age: 20 Year
  Sex: Female

DRUGS (4)
  1. SAPHRIS [Suspect]
     Indication: BIPOLAR DISORDER
     Dosage: 5 MG; HS; SL, 5 MG; BID; SL, 5 MG; HS; SL
     Route: 060
     Dates: end: 20100907
  2. SAPHRIS [Suspect]
     Indication: IRRITABILITY
     Dosage: 5 MG; HS; SL, 5 MG; BID; SL, 5 MG; HS; SL
     Route: 060
     Dates: end: 20100907
  3. SAPHRIS [Suspect]
     Indication: BIPOLAR DISORDER
     Dosage: 5 MG; HS; SL, 5 MG; BID; SL, 5 MG; HS; SL
     Route: 060
     Dates: start: 20100831
  4. SAPHRIS [Suspect]
     Indication: IRRITABILITY
     Dosage: 5 MG; HS; SL, 5 MG; BID; SL, 5 MG; HS; SL
     Route: 060
     Dates: start: 20100831

REACTIONS (4)
  - INAPPROPRIATE SCHEDULE OF DRUG ADMINISTRATION [None]
  - SEDATION [None]
  - SOMNOLENCE [None]
  - UNDERDOSE [None]
